FAERS Safety Report 8043503-3 (Version None)
Quarter: 2012Q1

REPORT INFORMATION
  Report Type: 
  Country: None (occurrence: None)
  Receive Date: 20120112
  Receipt Date: 20120109
  Transmission Date: 20120608
  Serious: Yes (Other)
  Sender: FDA-Public Use
  Company Number: BR-PFIZER INC-2009290265

PATIENT
  Age: 34 Year
  Sex: Female
  Weight: 53.016 kg

DRUGS (2)
  1. DOSTINEX [Suspect]
     Indication: BLOOD PROLACTIN INCREASED
     Dosage: 1 AND HALF
  2. LYRICA [Suspect]
     Indication: ARTHRALGIA
     Dosage: 75 MG, 1X/DAY
     Dates: start: 20111101

REACTIONS (8)
  - BREAST ENLARGEMENT [None]
  - NAUSEA [None]
  - MENSTRUATION DELAYED [None]
  - BLOOD PROLACTIN INCREASED [None]
  - SENSORY DISTURBANCE [None]
  - WEIGHT INCREASED [None]
  - MENSTRUATION IRREGULAR [None]
  - PAIN [None]
